FAERS Safety Report 8067150-2 (Version None)
Quarter: 2012Q1

REPORT INFORMATION
  Report Type: 
  Country: None (occurrence: None)
  Receive Date: 20120124
  Receipt Date: 20120118
  Transmission Date: 20120608
  Serious: Yes (Hospitalization, Other)
  Sender: FDA-Public Use
  Company Number: FR-PFIZER INC-K201100642

PATIENT
  Age: 77 Year
  Sex: Male

DRUGS (12)
  1. LEVOTHYROXINE SODIUM [Concomitant]
     Dosage: UNK
  2. RAMIPRIL [Suspect]
     Indication: HYPERTENSION
     Dosage: 10 MG, 1X/DAY
     Route: 048
     Dates: end: 20110120
  3. PLAVIX [Concomitant]
     Dosage: UNK
  4. ZOLPIDEM [Concomitant]
     Dosage: UNK
  5. ROSUVASTATIN [Concomitant]
     Dosage: UNK
  6. RAMIPRIL [Suspect]
     Dosage: 5 MG, 1X/DAY
     Dates: start: 20110121, end: 20110126
  7. INSPRA [Suspect]
     Indication: CARDIAC FAILURE
     Dosage: 25 MG, 1X/DAY
     Route: 048
     Dates: end: 20110126
  8. LASIX [Suspect]
     Indication: HYPERTENSION
     Dosage: UNK
     Route: 048
     Dates: end: 20110121
  9. COLCHICINE [Suspect]
     Indication: GOUT
     Dosage: UNK
     Route: 048
     Dates: start: 20110121, end: 20110126
  10. ASPIRIN [Concomitant]
     Dosage: UNK
  11. ESOMEPRAZOLE [Concomitant]
     Dosage: UNK
  12. BISOPROLOL [Concomitant]
     Dosage: UNK

REACTIONS (8)
  - OLIGURIA [None]
  - GOUT [None]
  - DIARRHOEA [None]
  - DECREASED APPETITE [None]
  - NAUSEA [None]
  - LEUKOPENIA [None]
  - RENAL FAILURE [None]
  - ANAEMIA [None]
